FAERS Safety Report 11145134 (Version 7)
Quarter: 2018Q3

REPORT INFORMATION
  Report Type: Report from Study
  Country: GB (occurrence: GB)
  Receive Date: 20150528
  Receipt Date: 20180816
  Transmission Date: 20181010
  Serious: Yes (Hospitalization, Other)
  Sender: FDA-Public Use
  Company Number: PHHY2014GB071137

PATIENT
  Age: 34 Year
  Sex: Female

DRUGS (1)
  1. GILENYA [Suspect]
     Active Substance: FINGOLIMOD HYDROCHLORIDE
     Indication: MULTIPLE SCLEROSIS
     Dosage: 0.5 MG, QD
     Route: 048
     Dates: start: 20140521, end: 20150429

REACTIONS (13)
  - White blood cell count decreased [Unknown]
  - Latent tuberculosis [Recovered/Resolved]
  - Tinnitus [Unknown]
  - Optic neuritis [Recovered/Resolved]
  - Sinus bradycardia [Recovered/Resolved]
  - Neuralgia [Unknown]
  - Pain in extremity [Unknown]
  - Optic neuritis [Recovered/Resolved]
  - Immune thrombocytopenic purpura [Unknown]
  - Back pain [Unknown]
  - Dyspepsia [Unknown]
  - Lymphocyte count decreased [Unknown]
  - Headache [Unknown]

NARRATIVE: CASE EVENT DATE: 20140521
